FAERS Safety Report 23250219 (Version 4)
Quarter: 2024Q4

REPORT INFORMATION
  Report Type: Spontaneous
  Country: CN (occurrence: CN)
  Receive Date: 20231201
  Receipt Date: 20241014
  Transmission Date: 20250115
  Serious: Yes (Life-Threatening, Hospitalization, Other)
  Sender: ACCORD
  Company Number: CN-Accord-392445

PATIENT
  Age: 68 Year
  Sex: Male

DRUGS (8)
  1. CAPECITABINE [Suspect]
     Active Substance: CAPECITABINE
     Indication: Adenocarcinoma gastric
     Dosage: 1G TWICE A DAY OS FOR 3 CYCLES
     Route: 048
     Dates: start: 2022, end: 202206
  2. OXALIPLATIN [Suspect]
     Active Substance: OXALIPLATIN
     Indication: Adenocarcinoma gastric
     Dosage: 200 MG IV FOR 3 CYCLES
     Route: 042
     Dates: start: 2022, end: 202206
  3. TRASTUZUMAB [Suspect]
     Active Substance: TRASTUZUMAB
     Indication: Adenocarcinoma gastric
     Dosage: 400 MG IV FOR THREE CYCLES
     Route: 042
     Dates: start: 2022, end: 202206
  4. METHYLPREDNISOLONE [Suspect]
     Active Substance: METHYLPREDNISOLONE
     Indication: Product used for unknown indication
     Dosage: IV
  5. PREDNISONE [Suspect]
     Active Substance: PREDNISONE
     Indication: Product used for unknown indication
     Dosage: 40 MG EACH DAY, REDUCED BY 4 MG EVERY 2 WEEKS
     Route: 048
  6. METHYLPREDNISOLONE [Suspect]
     Active Substance: METHYLPREDNISOLONE
     Indication: Product used for unknown indication
     Dosage: IV DRIP
  7. PREDNISONE [Suspect]
     Active Substance: PREDNISONE
     Indication: Product used for unknown indication
     Dosage: 16 MG EACH DAY, REDUCED BY 4 MG EVERY WEEKS
     Route: 048
  8. PREDNISONE [Suspect]
     Active Substance: PREDNISONE
     Indication: Product used for unknown indication
     Dosage: 8 MG EACH DAY,
     Route: 048

REACTIONS (7)
  - Pneumonia klebsiella [Unknown]
  - Anti-neutrophil cytoplasmic antibody positive vasculitis [Recovered/Resolved]
  - Renal vasculitis [Recovering/Resolving]
  - Epistaxis [Recovering/Resolving]
  - Pulmonary alveolar haemorrhage [Recovered/Resolved]
  - Glomerulonephritis rapidly progressive [Recovering/Resolving]
  - Pulmonary vasculitis [Recovering/Resolving]

NARRATIVE: CASE EVENT DATE: 20220101
